FAERS Safety Report 8073455-1 (Version None)
Quarter: 2012Q1

REPORT INFORMATION
  Report Type: 
  Country: None (occurrence: None)
  Receive Date: 20120126
  Receipt Date: 20120126
  Transmission Date: 20120608
  Serious: Yes (Hospitalization)
  Sender: FDA-Public Use
  Company Number: None

PATIENT
  Age: 55 Year
  Sex: Female
  Weight: 80 kg

DRUGS (2)
  1. NULOJIX [Suspect]
     Indication: RENAL TRANSPLANT
     Dosage: 400.0 MG
     Route: 003
     Dates: start: 20120105, end: 20120105
  2. NULOJIX [Suspect]
     Indication: IMMUNOSUPPRESSANT DRUG THERAPY
     Dosage: 400.0 MG
     Route: 003
     Dates: start: 20120105, end: 20120105

REACTIONS (4)
  - INTESTINAL PERFORATION [None]
  - HEADACHE [None]
  - VOLVULUS [None]
  - INTESTINAL ISCHAEMIA [None]
